FAERS Safety Report 14607737 (Version 1)
Quarter: 2018Q1

REPORT INFORMATION
  Report Type: Spontaneous
  Country: US (occurrence: US)
  Receive Date: 20180307
  Receipt Date: 20180307
  Transmission Date: 20180509
  Serious: No
  Sender: FDA-Public Use
  Company Number: US-GLAXOSMITHKLINE-US2018036101

PATIENT
  Sex: Male

DRUGS (1)
  1. INCRUSE ELLIPTA [Suspect]
     Active Substance: UMECLIDINIUM BROMIDE
     Dosage: 1 PUFF(S), QD
     Route: 055

REACTIONS (3)
  - Drug ineffective [Not Recovered/Not Resolved]
  - Dyspnoea [Unknown]
  - Drug effect incomplete [Unknown]
